FAERS Safety Report 5037642-9 (Version None)
Quarter: 2006Q2

REPORT INFORMATION
  Report Type: 
  Country: None (occurrence: None)
  Receive Date: 20060627
  Receipt Date: 20060627
  Transmission Date: 20061013
  Serious: Yes (Life-Threatening, Hospitalization)
  Sender: FDA-Public Use
  Company Number: None

PATIENT
  Age: 40 Year
  Sex: Male

DRUGS (1)
  1. TUBERSOL [Suspect]
     Indication: TUBERCULIN TEST
     Dosage: 0.1 CC ANNUAL TEST TRANSDERMAL (X1)
     Route: 062
     Dates: start: 20060609

REACTIONS (2)
  - GUILLAIN-BARRE SYNDROME [None]
  - PULMONARY FUNCTION TEST ABNORMAL [None]
